FAERS Safety Report 15754314 (Version 1)
Quarter: 2018Q4

REPORT INFORMATION
  Report Type: Spontaneous
  Country: FR (occurrence: FR)
  Receive Date: 20181223
  Receipt Date: 20181223
  Transmission Date: 20190205
  Serious: Yes (Other)
  Sender: FDA-Public Use
  Company Number: FR-STRIDES ARCOLAB LIMITED-2018SP010696

PATIENT
  Sex: Female

DRUGS (8)
  1. METHOTREXATE. [Suspect]
     Active Substance: METHOTREXATE
     Indication: SARCOIDOSIS
     Dosage: UNK
     Route: 065
     Dates: start: 2001, end: 2009
  2. HYDROXYCHLOROQUINE [Concomitant]
     Active Substance: HYDROXYCHLOROQUINE
     Indication: SARCOIDOSIS
     Dosage: UNK
     Route: 065
     Dates: start: 2001, end: 2009
  3. DAPSONE. [Concomitant]
     Active Substance: DAPSONE
     Indication: SARCOIDOSIS
     Dosage: UNK
     Route: 065
     Dates: start: 2009, end: 2015
  4. ADALIMUMAB [Suspect]
     Active Substance: ADALIMUMAB
     Indication: SARCOIDOSIS
     Dosage: UNK
     Route: 065
     Dates: start: 2009
  5. THALIDOMIDE [Concomitant]
     Active Substance: THALIDOMIDE
     Indication: SARCOIDOSIS
     Dosage: UNK
     Route: 065
     Dates: start: 2001, end: 2009
  6. DOXYCYCLINE. [Concomitant]
     Active Substance: DOXYCYCLINE
     Indication: SARCOIDOSIS
     Dosage: UNK
     Route: 065
     Dates: start: 2001, end: 2015
  7. COLCHICINE. [Concomitant]
     Active Substance: COLCHICINE
     Indication: SARCOIDOSIS
     Dosage: UNK
     Route: 065
     Dates: start: 2001, end: 2009
  8. MYCOPHENOLATE MOFETIL. [Suspect]
     Active Substance: MYCOPHENOLATE MOFETIL
     Indication: SARCOIDOSIS
     Dosage: UNK
     Route: 065
     Dates: start: 201511

REACTIONS (4)
  - Cutaneous tuberculosis [Recovered/Resolved]
  - Off label use [Unknown]
  - False negative investigation result [Unknown]
  - Condition aggravated [Recovered/Resolved]
